FAERS Safety Report 7126791-7 (Version None)
Quarter: 2010Q4

REPORT INFORMATION
  Report Type: 
  Country: None (occurrence: None)
  Receive Date: 20101129
  Receipt Date: 20091124
  Transmission Date: 20110411
  Serious: No
  Sender: FDA-Public Use
  Company Number: US-PFIZER INC-2009284299

PATIENT
  Sex: Male

DRUGS (10)
  1. VIAGRA [Suspect]
     Indication: ERECTILE DYSFUNCTION
     Dosage: 100 MG, AS NEEDED
     Route: 048
  2. CYCLOBENZAPRINE [Concomitant]
     Dosage: UNK
  3. LYRICA [Concomitant]
  4. MONTELUKAST SODIUM [Concomitant]
     Dosage: UNK
  5. LISINOPRIL [Concomitant]
     Indication: HYPERTENSION
  6. ROIPNOL [Concomitant]
     Indication: EYE DISORDER
  7. OPTIVAR [Concomitant]
     Indication: EYE DISORDER
     Dosage: UNK
     Route: 047
  8. TAMSULOSIN [Concomitant]
     Indication: PROSTATIC DISORDER
     Dosage: UNK
  9. NORCO [Concomitant]
     Indication: PAIN
     Dosage: UNK
  10. TOPIRAMATE [Concomitant]
     Dosage: 560 MG, UNK

REACTIONS (1)
  - DRUG INEFFECTIVE [None]
